FAERS Safety Report 6753520-9 (Version None)
Quarter: 2010Q2

REPORT INFORMATION
  Report Type: 
  Country: None (occurrence: None)
  Receive Date: 20100528
  Receipt Date: 20100517
  Transmission Date: 20101027
  Serious: Yes (Other)
  Sender: FDA-Public Use
  Company Number: A-22664793

PATIENT
  Age: 65 Year
  Sex: Female

DRUGS (2)
  1. DICLOFENAC SODIUM [Suspect]
     Indication: SERONEGATIVE ARTHRITIS
     Dosage: 75 MG, TWICE DAILY, ORAL
     Route: 048
  2. PREDNISOLONE [Concomitant]

REACTIONS (10)
  - COLONIC STENOSIS [None]
  - CONDITION AGGRAVATED [None]
  - DIARRHOEA HAEMORRHAGIC [None]
  - GASTRITIS [None]
  - GASTROINTESTINAL INFLAMMATION [None]
  - INFLAMMATORY BOWEL DISEASE [None]
  - IRON DEFICIENCY ANAEMIA [None]
  - MEAN CELL VOLUME DECREASED [None]
  - NAUSEA [None]
  - VOMITING [None]
